FAERS Safety Report 4755148-9 (Version None)
Quarter: 2005Q3

REPORT INFORMATION
  Report Type: 
  Country: None (occurrence: None)
  Receive Date: 20050829
  Receipt Date: 20050823
  Transmission Date: 20060218
  Serious: Yes (Other)
  Sender: FDA-Public Use
  Company Number: US-BRISTOL-MYERS SQUIBB COMPANY-13087408

PATIENT
  Age: 55 Year
  Sex: Male
  Weight: 40 kg

DRUGS (4)
  1. EFAVIRENZ [Suspect]
     Dates: start: 19990101
  2. STAVUDINE [Suspect]
     Dates: start: 19990101, end: 20030526
  3. LAMIVUDINE [Suspect]
     Dates: start: 19990101
  4. TENOFOVIR [Concomitant]
     Dates: start: 20030526

REACTIONS (5)
  - ANAEMIA [None]
  - LIPOATROPHY [None]
  - NEUROPATHY [None]
  - PYELONEPHRITIS [None]
  - RENAL TUBULAR ACIDOSIS [None]
